FAERS Safety Report 8992245 (Version 1)
Quarter: 2012Q4

REPORT INFORMATION
  Report Type: 
  Country: FR (occurrence: FR)
  Receive Date: 20121231
  Receipt Date: 20121231
  Transmission Date: 20130627
  Serious: Yes (Hospitalization)
  Sender: FDA-Public Use
  Company Number: FR-ELI_LILLY_AND_COMPANY-FR201212006971

PATIENT
  Age: 73 Year
  Sex: Female

DRUGS (2)
  1. FORSTEO [Suspect]
     Indication: OSTEOPOROSIS POSTMENOPAUSAL
     Dosage: 20 ug, qd
     Route: 058
     Dates: start: 20120220, end: 20121216
  2. DULOXETINE HYDROCHLORIDE [Suspect]

REACTIONS (2)
  - Fall [Recovered/Resolved]
  - Dizziness [Recovered/Resolved]
